FAERS Safety Report 10179616 (Version 1)
Quarter: 2014Q2

REPORT INFORMATION
  Report Type: Spontaneous
  Country: US (occurrence: US)
  Receive Date: 20140519
  Receipt Date: 20140519
  Transmission Date: 20141212
  Serious: No
  Sender: FDA-Public Use
  Company Number: US-PFIZER INC-2014134183

PATIENT
  Age: 56 Year
  Sex: Male
  Weight: 108.84 kg

DRUGS (3)
  1. FLAGYL [Suspect]
     Indication: INFECTION PARASITIC
     Dosage: 500 MG, 3X/DAY
     Dates: start: 20140501, end: 201405
  2. JANUVIA [Concomitant]
     Indication: TYPE 2 DIABETES MELLITUS
     Dosage: 100 MG, DAILY
  3. METFORMIN [Concomitant]
     Indication: TYPE 2 DIABETES MELLITUS
     Dosage: 750 MG, 2X/DAY

REACTIONS (5)
  - Feeling abnormal [Not Recovered/Not Resolved]
  - Sensory loss [Not Recovered/Not Resolved]
  - Neuropathy peripheral [Not Recovered/Not Resolved]
  - Hypoaesthesia [Not Recovered/Not Resolved]
  - Paraesthesia [Not Recovered/Not Resolved]
